FAERS Safety Report 4552871-6 (Version None)
Quarter: 2005Q1

REPORT INFORMATION
  Report Type: 
  Country: None (occurrence: None)
  Receive Date: 20050112
  Receipt Date: 20050112
  Transmission Date: 20050727
  Serious: No
  Sender: FDA-Public Use
  Company Number: None

PATIENT
  Age: 84 Year
  Sex: Female
  Weight: 68.9467 kg

DRUGS (1)
  1. PROCARDIA XL [Suspect]
     Indication: HYPERTENSION
     Dosage: 30MG QD ORAL
     Route: 048
     Dates: start: 20041201

REACTIONS (3)
  - BURNING SENSATION [None]
  - HEADACHE [None]
  - PHARMACEUTICAL PRODUCT COMPLAINT [None]
